FAERS Safety Report 9707678 (Version 2)
Quarter: 2013Q4

REPORT INFORMATION
  Report Type: Spontaneous
  Country: US (occurrence: US)
  Receive Date: 20131125
  Receipt Date: 20131223
  Transmission Date: 20140711
  Serious: Yes (Other)
  Sender: FDA-Public Use
  Company Number: US-PFIZER INC-2013336081

PATIENT
  Sex: Female

DRUGS (3)
  1. GEMFIBROZIL [Suspect]
     Dosage: UNK
  2. NIACIN [Concomitant]
     Dosage: UNK
  3. FISH OIL [Concomitant]
     Dosage: UNK

REACTIONS (2)
  - Bile duct stone [Unknown]
  - Cholelithiasis [Unknown]
